FAERS Safety Report 8806136 (Version 1)
Quarter: 2012Q4

REPORT INFORMATION
  Report Type: Spontaneous
  Country: FR (occurrence: None)
  Receive Date: 20120918
  Receipt Date: 20120918
  Transmission Date: 20130627
  Serious: Yes (Hospitalization)
  Sender: FDA-Public Use
  Company Number: FR-1194111

PATIENT
  Age: 3 Year
  Sex: Male

DRUGS (1)
  1. SKIACOL [Suspect]
     Dosage: within 1 hour
     Route: 047
     Dates: start: 20120803, end: 20120803

REACTIONS (4)
  - Abnormal behaviour [None]
  - Somnolence [None]
  - Hyperthermia [None]
  - Agitation [None]
